FAERS Safety Report 16905397 (Version 2)
Quarter: 2019Q4

REPORT INFORMATION
  Report Type: Spontaneous
  Country: FR (occurrence: FR)
  Receive Date: 20191010
  Receipt Date: 20191218
  Transmission Date: 20200122
  Serious: Yes (Hospitalization, Other)
  Sender: FDA-Public Use
  Company Number: FR-PFIZER INC-2019434332

PATIENT
  Age: 44 Year
  Sex: Female
  Weight: 80 kg

DRUGS (6)
  1. PRADAXA [Concomitant]
     Active Substance: DABIGATRAN ETEXILATE MESYLATE
     Dosage: UNK
  2. BISOCE [Concomitant]
     Active Substance: BISOPROLOL
     Dosage: UNK
  3. RAMIPRIL. [Suspect]
     Active Substance: RAMIPRIL
     Dosage: UNK
     Route: 048
     Dates: start: 201905, end: 2019
  4. BRILIQUE [Concomitant]
     Active Substance: TICAGRELOR
     Dosage: UNK
  5. ESOMEPRAZOLE. [Concomitant]
     Active Substance: ESOMEPRAZOLE MAGNESIUM
     Dosage: UNK
  6. LASILIX [FUROSEMIDE] [Concomitant]
     Active Substance: FUROSEMIDE
     Dosage: UNK

REACTIONS (2)
  - Acute kidney injury [Recovered/Resolved with Sequelae]
  - Hypovolaemic shock [Recovered/Resolved with Sequelae]

NARRATIVE: CASE EVENT DATE: 201905
